FAERS Safety Report 4945242-1 (Version None)
Quarter: 2006Q1

REPORT INFORMATION
  Report Type: 
  Country: None (occurrence: None)
  Receive Date: 20060315
  Receipt Date: 20060315
  Transmission Date: 20060701
  Serious: Yes (Other)
  Sender: FDA-Public Use
  Company Number: None

PATIENT
  Age: 15 Year
  Sex: Male
  Weight: 97.5234 kg

DRUGS (2)
  1. PROVIGIL [Suspect]
     Indication: ATTENTION DEFICIT/HYPERACTIVITY DISORDER
     Dosage: 200MG  ONCE QAM  PO
     Route: 048
     Dates: start: 20060220, end: 20060304
  2. PROVIGIL [Suspect]
     Indication: HYPERSOMNIA
     Dosage: 200MG  ONCE QAM  PO
     Route: 048
     Dates: start: 20060220, end: 20060304

REACTIONS (4)
  - EYE DISORDER [None]
  - EYELID OEDEMA [None]
  - SWELLING FACE [None]
  - TENDERNESS [None]
